FAERS Safety Report 11988597 (Version 1)
Quarter: 2016Q1

REPORT INFORMATION
  Report Type: Spontaneous
  Country: FR (occurrence: FR)
  Receive Date: 20160202
  Receipt Date: 20160202
  Transmission Date: 20160526
  Serious: Yes (Hospitalization)
  Sender: FDA-Public Use
  Company Number: FR-PFIZER INC-2005053065

PATIENT
  Age: 12 Year
  Sex: Female
  Weight: 33 kg

DRUGS (5)
  1. VANCOCIN [Suspect]
     Active Substance: VANCOMYCIN HYDROCHLORIDE
     Indication: SEPSIS
     Route: 042
     Dates: start: 20050126, end: 20050217
  2. AMIKLIN /00391001/ [Suspect]
     Active Substance: AMIKACIN SULFATE
     Indication: SEPSIS
     Route: 042
     Dates: start: 20050204, end: 20050210
  3. RIFADINE /00146901/ [Suspect]
     Active Substance: RIFAMPIN
     Indication: SEPSIS
     Route: 042
     Dates: start: 20050126, end: 20050210
  4. TRIFLUCAN [Suspect]
     Active Substance: FLUCONAZOLE
     Indication: SEPSIS
     Route: 042
     Dates: start: 20050126, end: 20050217
  5. TAZOCILLINE [Suspect]
     Active Substance: PIPERACILLIN SODIUM\TAZOBACTAM SODIUM
     Indication: SEPSIS
     Route: 042
     Dates: start: 20050204, end: 20050210

REACTIONS (12)
  - Leukopenia [Recovered/Resolved]
  - Urticaria [Recovered/Resolved]
  - Eosinophilia [Recovered/Resolved]
  - Hepatocellular injury [Unknown]
  - Drug reaction with eosinophilia and systemic symptoms [Recovered/Resolved]
  - Cheilitis [Unknown]
  - Blood alkaline phosphatase increased [Recovered/Resolved]
  - Neutropenia [Recovered/Resolved]
  - Oedema peripheral [Unknown]
  - Alanine aminotransferase increased [Recovered/Resolved]
  - Lymphadenopathy [Unknown]
  - Face oedema [Unknown]

NARRATIVE: CASE EVENT DATE: 20050210
